FAERS Safety Report 24594426 (Version 1)
Quarter: 2024Q4

REPORT INFORMATION
  Report Type: Spontaneous
  Country: US (occurrence: US)
  Receive Date: 20241108
  Receipt Date: 20241108
  Transmission Date: 20250115
  Serious: No
  Sender: PANGEA PHARMACEUTICALS LLC
  Company Number: US-PANGEAPHARMA-2024PAN00034

PATIENT
  Sex: Male

DRUGS (1)
  1. ERGOMAR [Suspect]
     Active Substance: ERGOTAMINE TARTRATE
     Indication: Migraine
     Route: 060

REACTIONS (1)
  - Drug ineffective [Unknown]
